FAERS Safety Report 4339885-6 (Version None)
Quarter: 2004Q2

REPORT INFORMATION
  Report Type: 
  Country: None (occurrence: None)
  Receive Date: 20040416
  Receipt Date: 20040406
  Transmission Date: 20050107
  Serious: Yes (Hospitalization, Other)
  Sender: FDA-Public Use
  Company Number: US-BRISTOL-MYERS SQUIBB COMPANY-12553798

PATIENT
  Age: 39 Year
  Sex: Female

DRUGS (7)
  1. SERZONE [Suspect]
     Dates: start: 19990801, end: 20000301
  2. TRAZODONE HCL [Concomitant]
  3. AMOXICILLIN [Concomitant]
  4. PANMIST DM [Concomitant]
  5. LOTRISONE [Concomitant]
  6. PROMETHAZINE HCL [Concomitant]
  7. CONTRACEPTIVE [Concomitant]
     Route: 048

REACTIONS (4)
  - COMA HEPATIC [None]
  - HEPATIC FAILURE [None]
  - HEPATITIS ACUTE [None]
  - LIVER TRANSPLANT [None]
